FAERS Safety Report 14636823 (Version 1)
Quarter: 2018Q1

REPORT INFORMATION
  Report Type: Spontaneous
  Country: US (occurrence: US)
  Receive Date: 20180314
  Receipt Date: 20180314
  Transmission Date: 20180509
  Serious: Yes (Hospitalization, Other)
  Sender: FDA-Public Use
  Company Number: US-IMPAX LABORATORIES, INC-2018-IPXL-00727

PATIENT
  Age: 54 Year
  Sex: Male

DRUGS (1)
  1. BUDESONIDE. [Suspect]
     Active Substance: BUDESONIDE
     Indication: COLITIS MICROSCOPIC
     Dosage: 9 MG, DAILY
     Route: 065

REACTIONS (5)
  - Product use in unapproved indication [Unknown]
  - Dehydration [Recovering/Resolving]
  - Presyncope [Recovering/Resolving]
  - Weight decreased [Recovering/Resolving]
  - Enterocolitis infectious [Recovering/Resolving]
